FAERS Safety Report 8165408-X (Version None)
Quarter: 2012Q1

REPORT INFORMATION
  Report Type: 
  Country: None (occurrence: None)
  Receive Date: 20120223
  Receipt Date: 20120223
  Transmission Date: 20120608
  Serious: No
  Sender: FDA-Public Use
  Company Number: None

PATIENT
  Age: 77 Year
  Sex: Female

DRUGS (1)
  1. BENICAR [Suspect]
     Dosage: 50 MG 1 DAY

REACTIONS (5)
  - MALAISE [None]
  - FEELING ABNORMAL [None]
  - VERTIGO [None]
  - NAUSEA [None]
  - HYPOAESTHESIA [None]
